FAERS Safety Report 23540906 (Version 1)
Quarter: 2024Q1

REPORT INFORMATION
  Report Type: Spontaneous
  Country: CA (occurrence: CA)
  Receive Date: 20240219
  Receipt Date: 20240219
  Transmission Date: 20240410
  Serious: Yes (Hospitalization, Other)
  Sender: FDA-Public Use
  Company Number: CA-FreseniusKabi-FK202401418

PATIENT
  Age: 20 Year
  Sex: Female

DRUGS (5)
  1. OXYTOCIN [Suspect]
     Active Substance: OXYTOCIN
     Indication: Labour induction
     Dosage: PFT-22010
     Route: 065
  2. OXYTOCIN [Suspect]
     Active Substance: OXYTOCIN
     Dosage: FOA: SOLUTION INTRAMUSCULAR?ROA: TRANSPLACENTAL
  3. CERVIDIL [Suspect]
     Active Substance: DINOPROSTONE
     Indication: Labour induction
     Dosage: FOA: INSERT?2 REGIMENS?10MG?ROA: TRANSPLACENTAL
  4. CERVIDIL [Suspect]
     Active Substance: DINOPROSTONE
     Route: 067
  5. CERVIDIL [Suspect]
     Active Substance: DINOPROSTONE
     Route: 067

REACTIONS (5)
  - Contraindicated product administered [Unknown]
  - Foetal heart rate abnormal [Unknown]
  - Drug ineffective [Unknown]
  - Prescribed overdose [Unknown]
  - Off label use [Unknown]
